FAERS Safety Report 9312209 (Version 1)
Quarter: 2013Q1

REPORT INFORMATION
  Report Type: Spontaneous
  Country: JP (occurrence: None)
  Receive Date: 20130329
  Receipt Date: 20130329
  Transmission Date: 20140127
  Serious: Yes (Death, Disabling)
  Sender: FDA-Public Use
  Company Number: 2012SA095487

PATIENT
  Age: 66 Year
  Sex: Female
  Weight: 52.2 kg

DRUGS (17)
  1. AMARYL (GLIMEPIRIDE) [Suspect]
     Indication: PRODUCT USED FOR UNKNOWN INDICATION
     Route: 048
     Dates: start: 20121222, end: 20121225
  2. CIPROXAN [Suspect]
     Indication: PRODUCT USED FOR UNKNOWN INDICATION
     Route: 042
     Dates: start: 20121225, end: 20121229
  3. ARTIST [Concomitant]
  4. FAMOTIDINE [Concomitant]
  5. ITOROL [Concomitant]
  6. BAYASPIRIN [Concomitant]
  7. ALDACTONE-A [Concomitant]
  8. BAKTAR [Concomitant]
  9. LASIX [Concomitant]
  10. HEPARIN SODIUM [Concomitant]
  11. NITOROL [Concomitant]
  12. SERENACE [Concomitant]
  13. AKINETON [Concomitant]
  14. HIERNAMIN [Concomitant]
  15. CEFTRIAXONE [Concomitant]
  16. MEROPENEM [Concomitant]
  17. ISODINE [Concomitant]

REACTIONS (7)
  - Hypoglycaemia [None]
  - Cellulitis gangrenous [None]
  - Pneumonia bacterial [None]
  - Acute respiratory distress syndrome [None]
  - Depressed level of consciousness [None]
  - Adverse event [None]
  - Metabolic disorder [None]
